FAERS Safety Report 13829346 (Version 1)
Quarter: 2017Q3

REPORT INFORMATION
  Report Type: Spontaneous
  Country: US (occurrence: US)
  Receive Date: 20170803
  Receipt Date: 20170803
  Transmission Date: 20171127
  Serious: No
  Sender: FDA-Public Use
  Company Number: None

PATIENT

DRUGS (2)
  1. CETYLEV [Suspect]
     Active Substance: ACETYLCYSTEINE
     Dosage: UNIT DOSE
     Route: 048
  2. CETYLEV [Suspect]
     Active Substance: ACETYLCYSTEINE
     Dosage: UNIT DOSE
     Route: 048

REACTIONS (1)
  - Product packaging issue [None]
